FAERS Safety Report 6564452-3 (Version None)
Quarter: 2010Q1

REPORT INFORMATION
  Report Type: 
  Country: None (occurrence: None)
  Receive Date: 20100201
  Receipt Date: 20100122
  Transmission Date: 20100710
  Serious: Yes (Hospitalization)
  Sender: FDA-Public Use
  Company Number: US-ASTRAZENECA-2010SE03020

PATIENT
  Sex: Male
  Weight: 95.3 kg

DRUGS (3)
  1. SEROQUEL XR [Suspect]
     Indication: BIPOLAR I DISORDER
     Route: 048
     Dates: start: 20090901
  2. LEXAPRO [Concomitant]
     Indication: DEPRESSION
     Route: 048
     Dates: start: 20080101
  3. LITHIUM [Concomitant]
     Indication: DEPRESSION
     Route: 048
     Dates: start: 20090901

REACTIONS (1)
  - MAJOR DEPRESSION [None]
